FAERS Safety Report 5019488-0 (Version None)
Quarter: 2006Q2

REPORT INFORMATION
  Report Type: 
  Country: None (occurrence: None)
  Receive Date: 20060605
  Receipt Date: 20060605
  Transmission Date: 20061013
  Serious: Yes (Hospitalization)
  Sender: FDA-Public Use
  Company Number: None

PATIENT
  Age: 81 Year
  Sex: Male
  Weight: 51.2565 kg

DRUGS (2)
  1. GEMCITABINE [Suspect]
     Indication: NEOPLASM MALIGNANT
     Dosage: 1600MGS ONCE IV DRIP
     Route: 041
     Dates: start: 20060125, end: 20060125
  2. OXALIPLATIN  38MGS/ML  LILLY [Suspect]
     Indication: NEOPLASM MALIGNANT
     Dosage: 160MGS  ONCE IV DRIP
     Route: 041
     Dates: start: 20060126, end: 20060126

REACTIONS (11)
  - ABDOMINAL DISTENSION [None]
  - ABDOMINAL PAIN [None]
  - ANOREXIA [None]
  - DEHYDRATION [None]
  - DIARRHOEA [None]
  - FAILURE TO THRIVE [None]
  - FATIGUE [None]
  - ORAL INTAKE REDUCED [None]
  - PERFORMANCE STATUS DECREASED [None]
  - PNEUMONIA ASPIRATION [None]
  - THROMBOCYTOPENIA [None]
